FAERS Safety Report 8015749-1 (Version None)
Quarter: 2011Q4

REPORT INFORMATION
  Report Type: 
  Country: None (occurrence: None)
  Receive Date: 20111230
  Receipt Date: 20111227
  Transmission Date: 20120403
  Serious: Yes (Death, Other)
  Sender: FDA-Public Use
  Company Number: PHEH2007US06797

PATIENT
  Sex: Male

DRUGS (21)
  1. HALOPERIDOL [Concomitant]
  2. CLINDAMYCIN [Concomitant]
     Dosage: 300 MG, UNK
     Dates: start: 20040101
  3. PROSCAR [Concomitant]
  4. LASIX [Concomitant]
     Dosage: 40 MG, QD
     Route: 048
  5. PROTONIX [Concomitant]
  6. ANTIBIOTICS [Concomitant]
     Route: 042
     Dates: end: 20050421
  7. VICODIN [Concomitant]
  8. DURAGESIC-100 [Concomitant]
  9. ZOMETA [Suspect]
     Indication: PROSTATE CANCER
     Dosage: 4 MG, QOD
     Route: 042
     Dates: start: 20030301, end: 20050101
  10. TAXOTERE [Concomitant]
  11. PENICILLIN [Concomitant]
  12. PERIDEX [Concomitant]
     Dates: start: 20040101
  13. BUMETANIDE [Concomitant]
  14. DECADRON #1 [Concomitant]
     Dosage: 2 MG, Q8H
  15. BENADRYL [Concomitant]
     Dosage: 25 MG, Q6H
     Route: 048
  16. CLOTRIMAZOLE [Concomitant]
  17. AREDIA [Suspect]
  18. LUPRON [Concomitant]
  19. EMCYT [Concomitant]
  20. KEFLEX [Concomitant]
     Dosage: 500 MG, QID
     Route: 048
  21. COMPAZINE [Concomitant]
     Dosage: 10 MG, Q6H
     Route: 048

REACTIONS (46)
  - OSTEONECROSIS OF JAW [None]
  - PAIN IN JAW [None]
  - STOMATITIS [None]
  - TOOTHACHE [None]
  - THROMBOSIS [None]
  - OSTEOLYSIS [None]
  - HAEMATURIA [None]
  - PLEURAL EFFUSION [None]
  - OEDEMA PERIPHERAL [None]
  - DEATH [None]
  - PAIN [None]
  - BACTERIAL TEST [None]
  - TOOTH ABSCESS [None]
  - BACTERIAL DISEASE CARRIER [None]
  - PARAESTHESIA [None]
  - CONFUSIONAL STATE [None]
  - HEPATITIS [None]
  - CONSTIPATION [None]
  - OSTEOMYELITIS CHRONIC [None]
  - METASTASES TO BONE [None]
  - BONE PAIN [None]
  - OSTEOMYELITIS [None]
  - ANAEMIA [None]
  - WEIGHT DECREASED [None]
  - DEAFNESS [None]
  - CARDIAC DISORDER [None]
  - BONE EROSION [None]
  - GLAUCOMA [None]
  - TOOTH INFECTION [None]
  - DISCOMFORT [None]
  - PATHOLOGICAL FRACTURE [None]
  - GENERAL PHYSICAL HEALTH DETERIORATION [None]
  - IMPAIRED HEALING [None]
  - BONE DISORDER [None]
  - DEEP VEIN THROMBOSIS [None]
  - TOOTH DISORDER [None]
  - EAR PAIN [None]
  - SOFT TISSUE DISORDER [None]
  - LIPOMA [None]
  - INSOMNIA [None]
  - ANXIETY [None]
  - GINGIVAL SWELLING [None]
  - GOUT [None]
  - DECUBITUS ULCER [None]
  - URINARY TRACT INFECTION [None]
  - DECREASED APPETITE [None]
